FAERS Safety Report 5497705-0 (Version None)
Quarter: 2007Q4

REPORT INFORMATION
  Report Type: 
  Country: None (occurrence: None)
  Receive Date: 20071025
  Receipt Date: 20070212
  Transmission Date: 20080405
  Serious: No
  Sender: FDA-Public Use
  Company Number: A0639195A

PATIENT
  Age: 77 Year
  Sex: Female

DRUGS (8)
  1. ADVAIR DISKUS 100/50 [Suspect]
     Dosage: 1PUFF TWICE PER DAY
     Route: 055
     Dates: start: 20061201
  2. K-DUR 10 [Concomitant]
  3. ATENOLOL [Concomitant]
  4. LOTREL [Concomitant]
  5. FUROSEMIDE [Concomitant]
  6. PREVACID [Concomitant]
  7. SUCRALFATE [Concomitant]
  8. ASPIRIN [Concomitant]

REACTIONS (2)
  - DRUG INEFFECTIVE [None]
  - NOCTURNAL DYSPNOEA [None]
